FAERS Safety Report 5103834-3 (Version None)
Quarter: 2006Q3

REPORT INFORMATION
  Report Type: 
  Country: None (occurrence: None)
  Receive Date: 20060911
  Receipt Date: 20060831
  Transmission Date: 20061208
  Serious: Yes (Other)
  Sender: FDA-Public Use
  Company Number: 2006106577

PATIENT
  Sex: Female

DRUGS (3)
  1. LIPITOR [Suspect]
     Indication: DYSLIPIDAEMIA
     Dosage: ORAL
     Route: 048
  2. ATENOLOL [Concomitant]
  3. ALL OTHER THERAPEUTIC PRODUCTS) (ALL OTHER THERAPEUTIC PRODUCTS) [Concomitant]

REACTIONS (3)
  - DISEASE RECURRENCE [None]
  - PAIN IN EXTREMITY [None]
  - SYSTEMIC LUPUS ERYTHEMATOSUS [None]
